FAERS Safety Report 8599395-7 (Version None)
Quarter: 2012Q3

REPORT INFORMATION
  Report Type: 
  Country: None (occurrence: None)
  Receive Date: 20120816
  Receipt Date: 20120814
  Transmission Date: 20120928
  Serious: Yes (Death)
  Sender: FDA-Public Use
  Company Number: PHHY2012MX070447

PATIENT
  Age: 63 Year
  Sex: Male

DRUGS (1)
  1. ONBREZ [Suspect]
     Indication: ASTHMA
     Dosage: 150 UG, DAILY
     Dates: start: 20120301

REACTIONS (1)
  - DEATH [None]
